FAERS Safety Report 6748382-X (Version None)
Quarter: 2010Q2

REPORT INFORMATION
  Report Type: 
  Country: None (occurrence: None)
  Receive Date: 20100601
  Receipt Date: 20100517
  Transmission Date: 20101027
  Serious: Yes (Other)
  Sender: FDA-Public Use
  Company Number: US-ASTRAZENECA-2010SE24695

PATIENT
  Age: 17858 Day
  Sex: Female

DRUGS (7)
  1. SEROQUEL [Suspect]
     Route: 048
     Dates: start: 20020326
  2. ZOLOFT [Concomitant]
     Dates: start: 20020326
  3. SERZONE [Concomitant]
     Dates: start: 20020703
  4. ALPRAZOLAM [Concomitant]
     Dates: start: 20020828
  5. DIAZEPAM [Concomitant]
     Dates: start: 20021028
  6. DEPAKOTE [Concomitant]
     Dates: start: 20021028
  7. ZYPREXA [Concomitant]
     Dates: start: 20021203

REACTIONS (2)
  - CARPAL TUNNEL SYNDROME [None]
  - NEUROPATHY PERIPHERAL [None]
